FAERS Safety Report 4685837-6 (Version None)
Quarter: 2005Q2

REPORT INFORMATION
  Report Type: 
  Country: None (occurrence: None)
  Receive Date: 20050607
  Receipt Date: 20050607
  Transmission Date: 20051028
  Serious: Yes (Other)
  Sender: FDA-Public Use
  Company Number: None

PATIENT
  Age: 42 Year
  Sex: Male
  Weight: 85 kg

DRUGS (1)
  1. PHENYTOIN [Suspect]
     Dosage: 200 MG PO Q 8 H
     Route: 048
     Dates: start: 20050225, end: 20050428

REACTIONS (2)
  - CONVULSION [None]
  - RASH [None]
